FAERS Safety Report 8364361-3 (Version None)
Quarter: 2012Q2

REPORT INFORMATION
  Report Type: 
  Country: None (occurrence: None)
  Receive Date: 20120516
  Receipt Date: 20120507
  Transmission Date: 20120825
  Serious: Yes (Hospitalization)
  Sender: FDA-Public Use
  Company Number: DE-VERTEX PHARMACEUTICALS INC.-000000000000000579

PATIENT
  Age: 68 Year
  Sex: Female

DRUGS (8)
  1. RIBAVIRINE [Concomitant]
     Indication: HEPATITIS C
     Route: 048
     Dates: start: 20120210
  2. BISOPROLOL FUMARATE [Concomitant]
     Route: 048
  3. PEGINTERFERON ALFA-2A [Concomitant]
     Indication: HEPATITIS C
     Route: 058
     Dates: start: 20120210
  4. ESIDRIX [Concomitant]
     Route: 048
  5. CETIRIZINE HCL [Concomitant]
     Route: 048
  6. ACETAMINOPHEN [Concomitant]
  7. INCIVO [Suspect]
     Indication: HEPATITIS C
     Dosage: DOSAGE FORM: TABLET
     Route: 048
     Dates: start: 20120210, end: 20120416
  8. RIBAVIRINE [Concomitant]

REACTIONS (1)
  - RASH [None]
